FAERS Safety Report 16140969 (Version 1)
Quarter: 2019Q2

REPORT INFORMATION
  Report Type: Spontaneous
  Country: DK (occurrence: DK)
  Receive Date: 20190401
  Receipt Date: 20190401
  Transmission Date: 20190711
  Serious: Yes (Disabling)
  Sender: FDA-Public Use
  Company Number: DK-MYLANLABS-2019M1028213

PATIENT
  Age: 69 Year
  Sex: Male
  Weight: 61 kg

DRUGS (12)
  1. FURIX (FUROSEMIDE) [Concomitant]
     Active Substance: FUROSEMIDE
     Indication: DIURETIC THERAPY
     Dosage: STYRKE: 40 MG.
     Route: 048
     Dates: start: 2012
  2. SIMVASTATIN TEVA [Concomitant]
     Active Substance: SIMVASTATIN
     Indication: HYPERCHOLESTEROLAEMIA
     Dosage: STYRKE: 20 MG.
     Route: 048
     Dates: start: 2012
  3. PANTOPRAZOLE TEVA [Concomitant]
     Active Substance: PANTOPRAZOLE SODIUM
     Indication: GASTROOESOPHAGEAL REFLUX DISEASE
     Dosage: STYRKE: 40 MG.
     Route: 048
  4. ALENDRONAT [Suspect]
     Active Substance: ALENDRONATE SODIUM
     Indication: OSTEOPOROSIS
     Dosage: STYRKE: 70 MG.
     Route: 048
     Dates: start: 20120521, end: 20180327
  5. THIAMINE. [Concomitant]
     Active Substance: THIAMINE
     Indication: HEPATIC CIRRHOSIS
     Dosage: STYRKE: 300 MG.
     Route: 048
     Dates: start: 20171205
  6. VITAMIN B [Concomitant]
     Active Substance: VITAMIN B
     Indication: HEPATIC CIRRHOSIS
     Dosage: DOSIS: 1 TABLET MORGEN, AFTEN OG F?R SENGETID. STYRKE: UKENDT.
     Route: 048
     Dates: start: 20171208
  7. NOVORAPID [Concomitant]
     Active Substance: INSULIN ASPART
     Indication: DIABETES MELLITUS
     Dosage: DOSIS: DOSERING EFTER SKRIFTLIG ANVISNING. STYRKE: 100 IE/ML.
     Dates: start: 20171212
  8. METOPROLOLSUCCINAT HEXAL [Concomitant]
     Active Substance: METOPROLOL SUCCINATE
     Indication: HYPERTENSION
     Dosage: STYRKE: 100 MG.
     Route: 048
     Dates: start: 2012
  9. MABLET [Concomitant]
     Indication: SUPPLEMENTATION THERAPY
     Dosage: DOSIS: 1 TABLET MORGEN, AFTEN OG F?R SENGETID. STYRKE: UKENDT.
     Route: 048
     Dates: start: 20171208
  10. MENADION [Concomitant]
     Indication: SUPPLEMENTATION THERAPY
     Dosage: STYRKE: 10 MG.
     Route: 048
     Dates: start: 20171205
  11. INSULATARD                         /00646002/ [Concomitant]
     Active Substance: INSULIN HUMAN
     Indication: DIABETES MELLITUS
     Dosage: DOSIS: DOSERING EFTER SKRIFTLIG ANVISNING. STYRKE: 100 IE/ML.
     Dates: start: 2011
  12. CREON 40 000 [Concomitant]
     Indication: PANCREATITIS CHRONIC
     Dosage: 120000 INTERNATIONAL UNIT, QD
     Route: 048
     Dates: start: 2010

REACTIONS (3)
  - Osteonecrosis of jaw [Not Recovered/Not Resolved]
  - Fracture [Not Recovered/Not Resolved]
  - Pain in jaw [Unknown]

NARRATIVE: CASE EVENT DATE: 20180504
